FAERS Safety Report 10831772 (Version 1)
Quarter: 2015Q1

REPORT INFORMATION
  Report Type: Spontaneous
  Country: CN (occurrence: CN)
  Receive Date: 20150219
  Receipt Date: 20150219
  Transmission Date: 20150721
  Serious: Yes (Death, Other)
  Sender: FDA-Public Use
  Company Number: PHHY2015CN016346

PATIENT
  Age: 64 Year
  Sex: Male

DRUGS (1)
  1. FLUDARABINE [Suspect]
     Active Substance: FLUDARABINE PHOSPHATE
     Indication: WALDENSTROM^S MACROGLOBULINAEMIA
     Dosage: 42 MG, QD FOR 5 DAYS, EVERY 4 WEEKS
     Route: 065

REACTIONS (8)
  - Mucosal haemorrhage [Unknown]
  - Pyrexia [Unknown]
  - Respiratory failure [Unknown]
  - Haematoma [Unknown]
  - Petechiae [Unknown]
  - Immune thrombocytopenic purpura [Fatal]
  - Pneumonia [Fatal]
  - Epistaxis [Unknown]
